FAERS Safety Report 8915227 (Version 1)
Quarter: 2012Q4

REPORT INFORMATION
  Report Type: 
  Country: US (occurrence: US)
  Receive Date: 20121119
  Receipt Date: 20121119
  Transmission Date: 20130627
  Serious: Yes (Hospitalization)
  Sender: FDA-Public Use
  Company Number: US-ELI_LILLY_AND_COMPANY-US201211003308

PATIENT
  Age: 59 None
  Sex: Female

DRUGS (10)
  1. FORTEO [Suspect]
     Indication: OSTEOPOROSIS
     Dosage: 20 ug, qd
     Dates: start: 201202
  2. DILANTIN [Concomitant]
  3. PROZAC [Concomitant]
  4. SINGULAIR [Concomitant]
  5. ANTIBIOTICS [Concomitant]
     Dosage: UNK
  6. VISTARIL [Concomitant]
  7. ANALGESICS [Concomitant]
     Indication: PAIN
  8. DRUG USED IN DIABETES [Concomitant]
     Indication: DIABETES MELLITUS
  9. ANTI-ASTHMATICS [Concomitant]
     Indication: ASTHMA
  10. CORTICOSTEROID NOS [Concomitant]

REACTIONS (7)
  - Spinal fracture [Unknown]
  - Rib fracture [Unknown]
  - Rib fracture [Unknown]
  - Wrist fracture [Unknown]
  - Fall [Unknown]
  - Crepitations [Unknown]
  - Pain [Unknown]
